FAERS Safety Report 9759883 (Version 1)
Quarter: 2013Q4

REPORT INFORMATION
  Report Type: Spontaneous
  Country: US (occurrence: US)
  Receive Date: 20131216
  Receipt Date: 20131216
  Transmission Date: 20140711
  Serious: No
  Sender: FDA-Public Use
  Company Number: US-009507513-1312USA003136

PATIENT
  Age: 25 Year
  Sex: Female
  Weight: 65.31 kg

DRUGS (1)
  1. IMPLANON [Suspect]
     Indication: CONTRACEPTION
     Dosage: 1 ROD, UNK
     Route: 059
     Dates: start: 201302

REACTIONS (3)
  - Device deployment issue [Not Recovered/Not Resolved]
  - Amenorrhoea [Not Recovered/Not Resolved]
  - Medical device complication [Not Recovered/Not Resolved]
